FAERS Safety Report 11484961 (Version 1)
Quarter: 2015Q3

REPORT INFORMATION
  Report Type: Spontaneous
  Country: US (occurrence: US)
  Receive Date: 20150903
  Receipt Date: 20150903
  Transmission Date: 20151125
  Serious: No
  Sender: FDA-Public Use
  Company Number: US-ELI_LILLY_AND_COMPANY-US201209001695

PATIENT
  Age: 44 Year
  Sex: Female

DRUGS (1)
  1. CYMBALTA [Suspect]
     Active Substance: DULOXETINE HYDROCHLORIDE
     Indication: FIBROMYALGIA
     Dosage: 15 MG, UNK
     Dates: start: 20120903, end: 20120905

REACTIONS (3)
  - Underdose [Unknown]
  - Nausea [Unknown]
  - Vomiting [Unknown]
